FAERS Safety Report 5517707-5 (Version None)
Quarter: 2007Q4

REPORT INFORMATION
  Report Type: 
  Country: None (occurrence: None)
  Receive Date: 20071113
  Receipt Date: 20071029
  Transmission Date: 20080405
  Serious: Yes (Death, Hospitalization)
  Sender: FDA-Public Use
  Company Number: 2007000931

PATIENT
  Age: 46 Year
  Sex: Female

DRUGS (1)
  1. TARCEVA [Suspect]
     Indication: ADENOCARCINOMA
     Dosage: 150  MG, QD, ORAL
     Route: 048

REACTIONS (7)
  - BACK PAIN [None]
  - KLEBSIELLA SEPSIS [None]
  - MULTI-ORGAN FAILURE [None]
  - MUSCULAR WEAKNESS [None]
  - PNEUMONITIS [None]
  - RESPIRATORY FAILURE [None]
  - SEPTIC SHOCK [None]
